FAERS Safety Report 7520901-5 (Version None)
Quarter: 2011Q2

REPORT INFORMATION
  Report Type: 
  Country: None (occurrence: None)
  Receive Date: 20110603
  Receipt Date: 20101123
  Transmission Date: 20111010
  Serious: Yes (Other)
  Sender: FDA-Public Use
  Company Number: US-BAYER-201047787GPV

PATIENT
  Age: 62 Year
  Sex: Male

DRUGS (2)
  1. OTHER IMMUNOSUPPRESSIVE AGENTS [Suspect]
     Indication: METASTATIC MALIGNANT MELANOMA
     Dosage: FOR 14 DAYS FOLLOWED BY A 7-DAY REST, 8 CYCLES
     Route: 048
  2. DACARBAZINE [Suspect]
     Indication: METASTATIC MALIGNANT MELANOMA
     Dosage: 8 CYCLES
     Route: 042

REACTIONS (2)
  - DEEP VEIN THROMBOSIS [None]
  - PULMONARY EMBOLISM [None]
